FAERS Safety Report 4592310-2 (Version None)
Quarter: 2005Q1

REPORT INFORMATION
  Report Type: 
  Country: None (occurrence: None)
  Receive Date: 20050228
  Receipt Date: 20041201
  Transmission Date: 20050727
  Serious: No
  Sender: FDA-Public Use
  Company Number: US-BRISTOL-MYERS SQUIBB COMPANY-12781340

PATIENT
  Age: 29 Year
  Sex: Male
  Weight: 61 kg

DRUGS (11)
  1. ABILIFY [Suspect]
     Indication: IMPULSIVE BEHAVIOUR
     Dosage: INITIATED AT 1 MG/TWICE DAILY, INCREASED TO 2.5 MG/TWICE DAILY.
     Route: 048
  2. ABILIFY [Suspect]
     Indication: AUTISM
     Dosage: INITIATED AT 1 MG/TWICE DAILY, INCREASED TO 2.5 MG/TWICE DAILY.
     Route: 048
  3. FOLIC ACID [Concomitant]
  4. ASPIRIN [Concomitant]
  5. MAGNESIUM [Concomitant]
  6. IRON [Concomitant]
  7. KLONOPIN [Concomitant]
  8. CLONIDINE [Concomitant]
  9. MECAMYLAMINE [Concomitant]
  10. LAMICTAL [Concomitant]
  11. TOPAMAX [Concomitant]

REACTIONS (2)
  - ALANINE AMINOTRANSFERASE INCREASED [None]
  - DRUG INTERACTION [None]
